FAERS Safety Report 9688868 (Version 2)
Quarter: 2013Q4

REPORT INFORMATION
  Report Type: Spontaneous
  Country: SE (occurrence: SE)
  Receive Date: 20131114
  Receipt Date: 20131224
  Transmission Date: 20140711
  Serious: Yes (Other)
  Sender: FDA-Public Use
  Company Number: PHHY2013SE129745

PATIENT
  Sex: Male

DRUGS (1)
  1. SIMVASTATIN SANDOZ [Suspect]

REACTIONS (1)
  - Myositis [Unknown]
